FAERS Safety Report 4619844-6 (Version None)
Quarter: 2005Q1

REPORT INFORMATION
  Report Type: 
  Country: None (occurrence: None)
  Receive Date: 20050328
  Receipt Date: 20050315
  Transmission Date: 20050727
  Serious: Yes (Death)
  Sender: FDA-Public Use
  Company Number: US-JNJFOC-20050304145

PATIENT
  Age: 76 Year
  Sex: Male
  Weight: 86.4 kg

DRUGS (6)
  1. INFLIXIMAB [Suspect]
     Route: 042
  2. INFLIXIMAB [Suspect]
     Indication: NON-SMALL CELL LUNG CANCER
     Route: 042
  3. PLACEBO [Suspect]
     Route: 042
  4. PLACEBO [Suspect]
     Indication: NON-SMALL CELL LUNG CANCER
     Route: 042
  5. DOCETAXEL [Suspect]
     Route: 042
  6. DOCETAXEL [Suspect]
     Indication: NON-SMALL CELL LUNG CANCER
     Route: 042

REACTIONS (3)
  - MALIGNANT NEOPLASM PROGRESSION [None]
  - NON-SMALL CELL LUNG CANCER [None]
  - PLEURAL EFFUSION [None]
